FAERS Safety Report 7803071-5 (Version None)
Quarter: 2011Q4

REPORT INFORMATION
  Report Type: 
  Country: None (occurrence: None)
  Receive Date: 20111007
  Receipt Date: 20111003
  Transmission Date: 20120403
  Serious: Yes (Hospitalization, Other)
  Sender: FDA-Public Use
  Company Number: DK-PFIZER INC-2011213306

PATIENT

DRUGS (14)
  1. CYCLOSPORINE [Suspect]
     Indication: B-CELL LYMPHOMA RECURRENT
     Dates: start: 20060901
  2. RITUXIMAB [Suspect]
     Dosage: UNK
     Dates: start: 20060215
  3. DOXORUBICIN HCL [Suspect]
     Indication: B-CELL LYMPHOMA RECURRENT
     Dates: start: 20060901
  4. PREDNISONE [Suspect]
     Indication: B-CELL LYMPHOMA RECURRENT
     Dates: start: 20060901
  5. CYCLOSPORINE [Suspect]
     Dosage: UNK
     Dates: start: 20050110
  6. RITUXIMAB [Suspect]
     Dosage: UNK
     Dates: start: 20050110
  7. RITUXIMAB [Suspect]
     Dosage: UNK
     Dates: start: 20080115
  8. ZEVALIN [Suspect]
     Indication: B-CELL LYMPHOMA RECURRENT
     Dates: start: 20060901, end: 20060901
  9. YTRACIS [Suspect]
     Dosage: UNK
     Dates: start: 20060215, end: 20060215
  10. VINCRISTINE [Suspect]
     Indication: B-CELL LYMPHOMA RECURRENT
     Dates: start: 20060901
  11. RITUXIMAB [Suspect]
     Indication: B-CELL LYMPHOMA RECURRENT
     Dates: start: 20060901
  12. ZEVALIN [Suspect]
     Dosage: UNK
     Dates: start: 20060215
  13. YTRACIS [Suspect]
     Indication: B-CELL LYMPHOMA RECURRENT
     Dates: start: 20060901, end: 20060901
  14. PREDNISONE [Suspect]
     Dosage: UNK
     Dates: start: 20080115

REACTIONS (2)
  - NEOPLASM MALIGNANT [None]
  - MYELODYSPLASTIC SYNDROME [None]
